FAERS Safety Report 10665473 (Version 10)
Quarter: 2015Q1

REPORT INFORMATION
  Report Type: Spontaneous
  Country: GB (occurrence: GB)
  Receive Date: 20141219
  Receipt Date: 20150320
  Transmission Date: 20150720
  Serious: Yes (Death, Life-Threatening, Hospitalization, Other)
  Sender: FDA-Public Use
  Company Number: PHFR2014GB008288

PATIENT
  Age: 56 Year
  Sex: Female

DRUGS (1)
  1. CLOZARIL [Suspect]
     Active Substance: CLOZAPINE
     Indication: SCHIZOPHRENIA
     Dosage: UNK
     Route: 048
     Dates: start: 20050404

REACTIONS (9)
  - Malaise [Fatal]
  - Metastases to lymph nodes [Fatal]
  - Neutrophil count decreased [Recovered/Resolved]
  - Anaemia [Recovered/Resolved with Sequelae]
  - Pyrexia [Fatal]
  - Ascites [Unknown]
  - Lung neoplasm malignant [Fatal]
  - White blood cell count decreased [Recovered/Resolved]
  - Malignant pleural effusion [Fatal]

NARRATIVE: CASE EVENT DATE: 20141204
